FAERS Safety Report 4919700-X (Version None)
Quarter: 2006Q1

REPORT INFORMATION
  Report Type: 
  Country: None (occurrence: None)
  Receive Date: 20060217
  Receipt Date: 20060207
  Transmission Date: 20060701
  Serious: Yes (Other)
  Sender: FDA-Public Use
  Company Number: HQWYE753010FEB06

PATIENT
  Sex: Female

DRUGS (2)
  1. PREMARIN [Suspect]
     Indication: HORMONE REPLACEMENT THERAPY
     Dosage: 0.625 MG 1X PER 1 DAY
  2. CYCRIN (MEDROXYPROGESTERONE ACETATATE) [Suspect]
     Indication: HORMONE REPLACEMENT THERAPY
     Dosage: 10 MG FOR 14 DAYS,EVERY THREE MONTHS

REACTIONS (2)
  - ADENOCARCINOMA [None]
  - OVARIAN CANCER METASTATIC [None]
